FAERS Safety Report 8162826-0 (Version None)
Quarter: 2012Q1

REPORT INFORMATION
  Report Type: 
  Country: None (occurrence: None)
  Receive Date: 20120224
  Receipt Date: 20120215
  Transmission Date: 20120608
  Serious: Yes (Hospitalization)
  Sender: FDA-Public Use
  Company Number: DE-B.I. PHARMACEUTICALS,INC./RIDGEFIELD-2012-DE-00058DE

PATIENT
  Sex: Female
  Weight: 82 kg

DRUGS (1)
  1. PRADAXA [Suspect]
     Indication: ATRIAL FIBRILLATION
     Dosage: 220 MG
     Route: 048
     Dates: start: 20110918, end: 20111027

REACTIONS (7)
  - PARAESTHESIA [None]
  - SWELLING [None]
  - NODAL OSTEOARTHRITIS [None]
  - HYPOAESTHESIA [None]
  - DRUG HYPERSENSITIVITY [None]
  - PAIN IN EXTREMITY [None]
  - OSTEOARTHRITIS [None]
